FAERS Safety Report 15003113 (Version 1)
Quarter: 2018Q2

REPORT INFORMATION
  Report Type: Report from Study
  Country: CN (occurrence: CN)
  Receive Date: 20180612
  Receipt Date: 20180612
  Transmission Date: 20180711
  Serious: Yes (Other)
  Sender: FDA-Public Use
  Company Number: CN-SUN PHARMACEUTICAL INDUSTRIES LTD-2018R1-175444

PATIENT
  Age: 33 Year
  Sex: Male

DRUGS (3)
  1. BROMOCRIPTINE [Interacting]
     Active Substance: BROMOCRIPTINE
     Dosage: 15 MG, DAILY
     Route: 065
  2. BROMOCRIPTINE [Interacting]
     Active Substance: BROMOCRIPTINE
     Indication: PROLACTIN-PRODUCING PITUITARY TUMOUR
     Dosage: 7.5 MG, DAILY
     Route: 065
  3. METFORMIN [Suspect]
     Active Substance: METFORMIN HYDROCHLORIDE
     Indication: PROLACTIN-PRODUCING PITUITARY TUMOUR
     Dosage: 1.5 G, DAILY
     Route: 065
     Dates: start: 201507

REACTIONS (6)
  - Product use in unapproved indication [Unknown]
  - Pituitary haemorrhage [Unknown]
  - Neoplasm progression [Unknown]
  - Drug ineffective [Unknown]
  - Therapeutic response unexpected [Unknown]
  - Drug interaction [Unknown]
